FAERS Safety Report 6397152-3 (Version None)
Quarter: 2009Q4

REPORT INFORMATION
  Report Type: 
  Country: None (occurrence: None)
  Receive Date: 20091012
  Receipt Date: 20091005
  Transmission Date: 20100525
  Serious: Yes (Other)
  Sender: FDA-Public Use
  Company Number: B0597115A

PATIENT
  Age: 82 Year
  Sex: Female

DRUGS (3)
  1. PAXIL [Suspect]
     Indication: DRUG USE FOR UNKNOWN INDICATION
     Route: 048
  2. POLYFUL [Concomitant]
     Route: 048
  3. BIOFERMIN [Concomitant]
     Route: 048

REACTIONS (3)
  - CONSTIPATION [None]
  - FALL [None]
  - SUICIDAL IDEATION [None]
